FAERS Safety Report 8791646 (Version 3)
Quarter: 2012Q4

REPORT INFORMATION
  Report Type: 
  Country: US (occurrence: US)
  Receive Date: 20120918
  Receipt Date: 20121106
  Transmission Date: 20130627
  Serious: Yes (Death, Hospitalization)
  Sender: FDA-Public Use
  Company Number: US-JNJFOC-20120906992

PATIENT
  Sex: Male

DRUGS (7)
  1. TYLENOL [Suspect]
     Indication: ARTHRITIS
     Dosage: 8-10 doses per day
     Route: 048
  2. TYLENOL [Suspect]
     Indication: PAIN
     Dosage: 8-10 doses per day
     Route: 048
  3. EXTRA STRENGTH TYLENOL [Suspect]
     Indication: ARTHRITIS
     Dosage: 6-12 doses a day
     Route: 048
     Dates: start: 1990, end: 1999
  4. EXTRA STRENGTH TYLENOL [Suspect]
     Indication: PAIN
     Dosage: 6-12 doses a day
     Route: 048
     Dates: start: 1990, end: 1999
  5. ACETAMINOPHEN [Suspect]
     Indication: ARTHRITIS
     Dosage: 8-10 doses per day
     Route: 048
  6. ACETAMINOPHEN [Suspect]
     Indication: PAIN
     Dosage: 8-10 doses per day
     Route: 048
  7. ALCOHOL [Suspect]
     Indication: PRODUCT USED FOR UNKNOWN INDICATION
     Route: 065

REACTIONS (7)
  - Hepatic failure [Fatal]
  - Respiratory failure [Fatal]
  - Pancreatic disorder [Fatal]
  - Overdose [Fatal]
  - Drug ineffective [Unknown]
  - Liver disorder [None]
  - Condition aggravated [None]
